FAERS Safety Report 25655137 (Version 2)
Quarter: 2025Q3

REPORT INFORMATION
  Report Type: Spontaneous
  Country: US (occurrence: US)
  Receive Date: 20250807
  Receipt Date: 20250902
  Transmission Date: 20251020
  Serious: Yes (Hospitalization)
  Sender: TEVA
  Company Number: US-TEVA-VS-3358129

PATIENT
  Age: 70 Year
  Sex: Male

DRUGS (2)
  1. ROSUVASTATIN [Interacting]
     Active Substance: ROSUVASTATIN
     Indication: Product used for unknown indication
     Route: 065
     Dates: start: 2012
  2. DAROLUTAMIDE [Interacting]
     Active Substance: DAROLUTAMIDE
     Indication: Hormone-refractory prostate cancer
     Route: 065

REACTIONS (2)
  - Rhabdomyolysis [Recovering/Resolving]
  - Drug interaction [Unknown]
